FAERS Safety Report 10139681 (Version 1)
Quarter: 2014Q2

REPORT INFORMATION
  Report Type: Spontaneous
  Country: US (occurrence: US)
  Receive Date: 20140429
  Receipt Date: 20140429
  Transmission Date: 20141212
  Serious: No
  Sender: FDA-Public Use
  Company Number: US-PFIZER INC-2014114910

PATIENT
  Age: 43 Year
  Sex: Female
  Weight: 43.99 kg

DRUGS (3)
  1. ADVIL [Suspect]
     Indication: HEADACHE
     Dosage: UNK, AS NEEDED
     Route: 048
     Dates: start: 20140421, end: 20140421
  2. SINEMET [Concomitant]
     Indication: PARKINSON^S DISEASE
     Dosage: UNK
  3. AZILECT [Concomitant]
     Indication: PARKINSON^S DISEASE
     Dosage: UNK

REACTIONS (4)
  - Foreign body [Not Recovered/Not Resolved]
  - Throat irritation [Not Recovered/Not Resolved]
  - Dysphagia [Not Recovered/Not Resolved]
  - Oropharyngeal pain [Not Recovered/Not Resolved]
